FAERS Safety Report 6707445-5 (Version None)
Quarter: 2010Q2

REPORT INFORMATION
  Report Type: 
  Country: None (occurrence: None)
  Receive Date: 20100429
  Receipt Date: 20100419
  Transmission Date: 20101027
  Serious: Yes (Hospitalization, Other)
  Sender: FDA-Public Use
  Company Number: MPS1-1000315

PATIENT
  Age: 29 Year
  Sex: Male
  Weight: 28 kg

DRUGS (2)
  1. ALDURAZYME [Suspect]
     Indication: MUCOPOLYSACCHARIDOSIS I
     Dosage: 20 MG, 1X/W, INTRAVENOUS
     Route: 042
     Dates: start: 20070103
  2. ANTIBIOTICS [Concomitant]

REACTIONS (4)
  - ANAEMIA [None]
  - DEHYDRATION [None]
  - PANCREATITIS [None]
  - PSYCHOTIC DISORDER [None]
